FAERS Safety Report 4368771-0 (Version None)
Quarter: 2004Q2

REPORT INFORMATION
  Report Type: 
  Country: None (occurrence: None)
  Receive Date: 20040525
  Receipt Date: 20040513
  Transmission Date: 20050107
  Serious: Yes (Hospitalization)
  Sender: FDA-Public Use
  Company Number: 2004AP02728

PATIENT
  Sex: Female

DRUGS (3)
  1. NOLVADEX [Suspect]
     Indication: BREAST CANCER
     Dosage: 20 MG DAILY PO
     Route: 048
     Dates: start: 20040401, end: 20040401
  2. ENDOXAN [Concomitant]
  3. ADRIAMYCIN PFS [Concomitant]

REACTIONS (2)
  - ALLERGIC BRONCHITIS [None]
  - PYREXIA [None]
